FAERS Safety Report 12690242 (Version 3)
Quarter: 2016Q4

REPORT INFORMATION
  Report Type: Spontaneous
  Country: US (occurrence: US)
  Receive Date: 20160826
  Receipt Date: 20161003
  Transmission Date: 20170207
  Serious: Yes (Disabling)
  Sender: FDA-Public Use
  Company Number: US-ACTELION-A-NJ2016-141190

PATIENT
  Age: 68 Year
  Sex: Female

DRUGS (12)
  1. SILDENAFIL. [Concomitant]
     Active Substance: SILDENAFIL
     Indication: PULMONARY ARTERIAL HYPERTENSION
  2. METOPROLOL. [Concomitant]
     Active Substance: METOPROLOL
  3. VALSARTAN. [Concomitant]
     Active Substance: VALSARTAN
  4. TRAZODONE [Concomitant]
     Active Substance: TRAZODONE HYDROCHLORIDE
  5. SILACE [Concomitant]
     Active Substance: DOCUSATE SODIUM
  6. FUROSEMIDE. [Concomitant]
     Active Substance: FUROSEMIDE
  7. NALOXEGOL [Concomitant]
     Active Substance: NALOXEGOL
  8. VOLTAREN [Concomitant]
     Active Substance: DICLOFENAC SODIUM
  9. NYSTATIN. [Concomitant]
     Active Substance: NYSTATIN
  10. TRACLEER [Suspect]
     Active Substance: BOSENTAN
     Indication: PULMONARY ARTERIAL HYPERTENSION
     Dosage: 62.5 MG, BID
     Route: 048
     Dates: start: 20160728, end: 201608
  11. SPIRIVA [Concomitant]
     Active Substance: TIOTROPIUM BROMIDE MONOHYDRATE
  12. PREMARIN [Concomitant]
     Active Substance: ESTROGENS, CONJUGATED

REACTIONS (3)
  - Oedema [Recovering/Resolving]
  - Myalgia [Recovering/Resolving]
  - Restless legs syndrome [Unknown]

NARRATIVE: CASE EVENT DATE: 20160728
